FAERS Safety Report 13910819 (Version 1)
Quarter: 2017Q3

REPORT INFORMATION
  Report Type: Spontaneous
  Country: AE (occurrence: AE)
  Receive Date: 20170828
  Receipt Date: 20170828
  Transmission Date: 20171127
  Serious: Yes (Other)
  Sender: FDA-Public Use
  Company Number: AE-UCBSA-2017033505

PATIENT
  Age: 1 Month
  Sex: Female

DRUGS (1)
  1. KEPPRA [Suspect]
     Active Substance: LEVETIRACETAM
     Indication: CONVULSION NEONATAL
     Dosage: 30 MG/KG
     Route: 042

REACTIONS (2)
  - Arrhythmia [Recovered/Resolved]
  - Off label use [Unknown]
